FAERS Safety Report 23347146 (Version 3)
Quarter: 2024Q1

REPORT INFORMATION
  Report Type: Spontaneous
  Country: US (occurrence: US)
  Receive Date: 20231228
  Receipt Date: 20240209
  Transmission Date: 20240410
  Serious: Yes (Hospitalization)
  Sender: FDA-Public Use
  Company Number: US-BRISTOL-MYERS SQUIBB COMPANY-2023-187154

PATIENT
  Age: 68 Year
  Sex: Female

DRUGS (1)
  1. LENALIDOMIDE [Suspect]
     Active Substance: LENALIDOMIDE
     Indication: Plasma cell myeloma
     Dosage: FREQUENCY- TAKE 1 CAPSULE BY MOUTH ONCE DAILY MONDAY THROUGH FRIDAY FOR 3 WEEKS ON AND 1 WEEK OFF FO
     Route: 048
     Dates: start: 20221114, end: 20231207

REACTIONS (2)
  - Mitral valve prolapse [Recovering/Resolving]
  - Off label use [Unknown]
